FAERS Safety Report 5429169-7 (Version None)
Quarter: 2007Q3

REPORT INFORMATION
  Report Type: 
  Country: None (occurrence: None)
  Receive Date: 20070829
  Receipt Date: 20070815
  Transmission Date: 20080115
  Serious: Yes (Hospitalization)
  Sender: FDA-Public Use
  Company Number: US-ELI_LILLY_AND_COMPANY-US200708003101

PATIENT
  Age: 55 Year
  Sex: Female

DRUGS (9)
  1. CYMBALTA [Suspect]
  2. PREMARIN [Concomitant]
  3. GLUCOPHAGE [Concomitant]
  4. AMARYL [Concomitant]
  5. MICARDIS [Concomitant]
  6. DOXAZOSIN MESYLATE [Concomitant]
  7. AMBIEN [Concomitant]
  8. ASPIRIN [Concomitant]
  9. ZOCOR [Concomitant]

REACTIONS (1)
  - GASTRIC BYPASS [None]
